FAERS Safety Report 24680831 (Version 1)
Quarter: 2024Q4

REPORT INFORMATION
  Report Type: Report from Study
  Country: US (occurrence: US)
  Receive Date: 20241129
  Receipt Date: 20241129
  Transmission Date: 20250115
  Serious: Yes (Other)
  Sender: UCB
  Company Number: US-UCBSA-2024061635

PATIENT
  Age: 67 Year
  Sex: Female
  Weight: 82.6 kg

DRUGS (21)
  1. BRIVARACETAM [Suspect]
     Active Substance: BRIVARACETAM
     Indication: Seizure
     Dosage: 100 MILLIGRAM, 2X/DAY (BID)
     Dates: start: 202401, end: 20240910
  2. BRIVARACETAM [Suspect]
     Active Substance: BRIVARACETAM
     Dosage: 100 MILLIGRAM, 2X/DAY (BID)
     Dates: start: 2024
  3. LAMICTAL [Concomitant]
     Active Substance: LAMOTRIGINE
     Indication: Epilepsy
     Dosage: 100 MILLIGRAM, TAKE 3 TAB BY MOUTH,, 3X/DAY (TID)
     Route: 048
  4. LAMICTAL [Concomitant]
     Active Substance: LAMOTRIGINE
     Dosage: 100 MILLIGRAM, 2 TABLETS, 3X/DAY (TID)
     Dates: start: 20240702
  5. FAMCICLOVIR [Concomitant]
     Active Substance: FAMCICLOVIR
     Indication: Oral herpes
     Dosage: TAKE 3 TABLETS BY MOUTH AT ONSET OF FEVER BLISTER AS DOCTOR DIRECTS
     Route: 048
  6. ACETAMINOPHEN [Concomitant]
     Active Substance: ACETAMINOPHEN
     Indication: Product used for unknown indication
     Dosage: TAKE 2 TAB BY MOUTH EVERY 6 HOURS, WEEKLY (QW)
  7. PROPRANOLOL [Concomitant]
     Active Substance: PROPRANOLOL HYDROCHLORIDE
     Indication: Product used for unknown indication
     Dosage: 20 MILLIGRAM, TAKE 1 TAB BY MOUTH, 3X/DAY (TID)
     Route: 048
     Dates: start: 20230801
  8. PEPCID [Concomitant]
     Active Substance: FAMOTIDINE
     Indication: Product used for unknown indication
     Dosage: 10 MILLIGRAM, AKE 1 TAB BY MOUTH DAILY, AS NEEDED (PRN)
     Route: 048
  9. ANTIVERT [Concomitant]
     Active Substance: MECLIZINE HYDROCHLORIDE
     Indication: Product used for unknown indication
     Dosage: 12.5 MILLIGRAM, TAKE 1 TAB BY MOUTH,4X/DAY (QID)
     Route: 048
  10. TESSALON [Concomitant]
     Active Substance: BENZONATATE
     Indication: Product used for unknown indication
     Dosage: 100 MILLIGRAM, TAKE 1 CAP BY MOUTH,3X/DAY (TID) AS NEEDED
     Route: 048
  11. PERI-COLACE [DOCUSATE SODIUM;SENNOSIDE A+B] [Concomitant]
     Indication: Product used for unknown indication
     Dosage: 8,6-50 RNG TABLET, TAKE BY MOUTH DAILY AS  NEEDED
     Route: 048
  12. ALBUTEROL [Concomitant]
     Active Substance: ALBUTEROL
     Indication: Product used for unknown indication
     Dosage: 90 MICROGRAM. INHALE 2 PUFFS AS INHALATION AEROSOL DIRECTED EVERY 6 HOURS AS NEEDED
  13. FLONASE [Concomitant]
     Active Substance: FLUTICASONE PROPIONATE
     Indication: Product used for unknown indication
     Dosage: 50 MICROGRAM, 2 SPRAYS BY EACH 50 MCGLACTUATION NASAL SPRAY NOSTRIL ROUTE DAILY AS NEEDED
  14. BIOFREEZE [CAMPHOR;MENTHOL] [Concomitant]
     Indication: Product used for unknown indication
     Dosage: APPLY AS NEEDED
     Route: 061
  15. ZYRTEC [Concomitant]
     Active Substance: CETIRIZINE HYDROCHLORIDE
     Indication: Product used for unknown indication
     Dosage: 10 MILLIGRAM, TAKE 1 TAB BY MOUTH DAILY AS NEEDED
     Route: 048
  16. ZOCOR [Concomitant]
     Active Substance: SIMVASTATIN
     Indication: Product used for unknown indication
     Dosage: 20 MILLIGRAM, TAKE 1 TAB BY MOUTH 3 AT BEDTIME
     Route: 048
     Dates: start: 20180316
  17. LEXAPRO [Concomitant]
     Active Substance: ESCITALOPRAM OXALATE
     Indication: Product used for unknown indication
     Dosage: 10 MILLIGRAM, TAKE 1 TABLET BY MOUTH, ONCE DAILY (QD)
     Route: 048
     Dates: start: 20240124
  18. ATARAX [Concomitant]
     Active Substance: HYDROXYZINE HYDROCHLORIDE
     Indication: Anxiety
     Dosage: 10 MILLIGRAM, TAKE 1-2 TABLETS MG TABLET BY MOUTH DAILY AS NEEDED
     Route: 048
     Dates: start: 20240124
  19. ROBAXIN [Concomitant]
     Active Substance: METHOCARBAMOL
     Indication: Product used for unknown indication
     Dosage: 500 MILLIGRAM, TAKE 1 TAB BY MOUTH,3X/DAY (TID)
     Route: 048
     Dates: start: 20230601
  20. ASPIRIN [Concomitant]
     Active Substance: ASPIRIN
     Indication: Product used for unknown indication
     Dosage: 81 MILLIGRAM, TAKE 1 TAB BY MOUTH, 2X/DAY (BID)
     Route: 048
     Dates: start: 20230531, end: 20230801
  21. PRILOSEC OTC [Concomitant]
     Active Substance: OMEPRAZOLE MAGNESIUM
     Indication: Product used for unknown indication
     Dosage: 20 MILLIGRAM, TAKE 1 TAB BY MOUTH, ONCE DAILY (QD)
     Route: 048
     Dates: end: 20240806

REACTIONS (2)
  - Partial seizures [Not Recovered/Not Resolved]
  - Inability to afford medication [Unknown]

NARRATIVE: CASE EVENT DATE: 20240101
